FAERS Safety Report 15203223 (Version 2)
Quarter: 2018Q4

REPORT INFORMATION
  Report Type: Spontaneous
  Country: US (occurrence: US)
  Receive Date: 20180726
  Receipt Date: 20181004
  Transmission Date: 20190204
  Serious: No
  Sender: FDA-Public Use
  Company Number: US-ELI_LILLY_AND_COMPANY-US201807007145

PATIENT
  Age: 61 Year
  Sex: Female

DRUGS (5)
  1. ADCIRCA [Suspect]
     Active Substance: TADALAFIL
     Dosage: 40 MG, UNK
     Route: 065
     Dates: start: 20180418
  2. AMBRISENTAN [Suspect]
     Active Substance: AMBRISENTAN
     Indication: PULMONARY ARTERIAL HYPERTENSION
     Dosage: 10 MG, DAILY
     Route: 065
     Dates: start: 20180205
  3. ADCIRCA [Suspect]
     Active Substance: TADALAFIL
     Indication: PRODUCT USED FOR UNKNOWN INDICATION
     Dosage: 20 MG, BID
     Route: 065
     Dates: start: 20180205
  4. AMBRISENTAN [Suspect]
     Active Substance: AMBRISENTAN
     Dosage: 10 MG, DAILY
     Route: 065
     Dates: start: 20180418
  5. ADCIRCA [Suspect]
     Active Substance: TADALAFIL
     Dosage: 20 MG, DAILY
     Route: 065

REACTIONS (3)
  - Fluid retention [Not Recovered/Not Resolved]
  - Neuropathy peripheral [Not Recovered/Not Resolved]
  - Glycosylated haemoglobin increased [Unknown]

NARRATIVE: CASE EVENT DATE: 20180601
